FAERS Safety Report 4869308-X (Version None)
Quarter: 2005Q4

REPORT INFORMATION
  Report Type: 
  Country: None (occurrence: None)
  Receive Date: 20051230
  Receipt Date: 20051227
  Transmission Date: 20060501
  Serious: Yes (Life-Threatening, Hospitalization)
  Sender: FDA-Public Use
  Company Number: PHRM2005FR03381

PATIENT
  Age: 5 Year
  Sex: Female

DRUGS (2)
  1. NEORAL [Suspect]
     Indication: NEPHROTIC SYNDROME
     Dosage: 600 MG, BID
     Route: 048
     Dates: start: 20051122, end: 20051127
  2. NEORAL [Suspect]
     Dosage: 60 MG, BID

REACTIONS (11)
  - ACCIDENTAL OVERDOSE [None]
  - BLINDNESS CORTICAL [None]
  - BLOOD MAGNESIUM DECREASED [None]
  - BLOOD PHOSPHORUS DECREASED [None]
  - DEPRESSED LEVEL OF CONSCIOUSNESS [None]
  - DRUG LEVEL INCREASED [None]
  - ENCEPHALOPATHY [None]
  - HYPERTENSION [None]
  - INCORRECT DOSE ADMINISTERED [None]
  - INTUBATION [None]
  - RENAL TUBULAR DISORDER [None]
